FAERS Safety Report 22658508 (Version 1)
Quarter: 2023Q2

REPORT INFORMATION
  Report Type: Report from Study
  Country: CN (occurrence: CN)
  Receive Date: 20230630
  Receipt Date: 20230630
  Transmission Date: 20230722
  Serious: Yes (Death, Hospitalization, Other)
  Sender: FDA-Public Use
  Company Number: CN-002147023-NVSC2023CN147776

PATIENT
  Age: 44 Year
  Sex: Female

DRUGS (1)
  1. FEMARA [Suspect]
     Active Substance: LETROZOLE
     Indication: Breast cancer
     Dosage: 2.5 MG, QD
     Route: 048
     Dates: start: 20221226, end: 20230122

REACTIONS (38)
  - Death [Fatal]
  - Sinus tachycardia [Not Recovered/Not Resolved]
  - Asthenia [Not Recovered/Not Resolved]
  - Myelosuppression [Unknown]
  - Pain [Unknown]
  - Arrhythmia [Unknown]
  - Benign lymph node neoplasm [Unknown]
  - Metastases to liver [Unknown]
  - Decreased appetite [Unknown]
  - Gamma-glutamyltransferase increased [Not Recovered/Not Resolved]
  - Aspartate aminotransferase increased [Not Recovered/Not Resolved]
  - Respiratory arrest [Unknown]
  - Cardiac arrest [Unknown]
  - Chronic hepatitis B [Unknown]
  - Blood urine present [Unknown]
  - Protein urine present [Unknown]
  - Urinary tract infection [Unknown]
  - Hypoproteinaemia [Not Recovered/Not Resolved]
  - Platelet count decreased [Not Recovered/Not Resolved]
  - Electrocardiogram T wave abnormal [Not Recovered/Not Resolved]
  - Blood alkaline phosphatase increased [Not Recovered/Not Resolved]
  - Alanine aminotransferase increased [Not Recovered/Not Resolved]
  - Tachypnoea [Unknown]
  - Poor quality sleep [Unknown]
  - Anaemia [Unknown]
  - Coagulopathy [Unknown]
  - Hypochloraemia [Unknown]
  - Hyponatraemia [Unknown]
  - Hypocalcaemia [Unknown]
  - Hypermagnesaemia [Unknown]
  - Type V hyperlipidaemia [Unknown]
  - Blood pressure diastolic increased [Unknown]
  - Pulse absent [Unknown]
  - Electrocardiogram abnormal [Unknown]
  - Cough [Unknown]
  - Palpitations [Unknown]
  - Weight decreased [Unknown]
  - Lymphoedema [Not Recovered/Not Resolved]

NARRATIVE: CASE EVENT DATE: 20230102
